FAERS Safety Report 6068236-4 (Version None)
Quarter: 2009Q1

REPORT INFORMATION
  Report Type: 
  Country: None (occurrence: None)
  Receive Date: 20090203
  Receipt Date: 20090120
  Transmission Date: 20090719
  Serious: Yes (Hospitalization)
  Sender: FDA-Public Use
  Company Number: 2008-04495

PATIENT
  Age: 54 Year
  Sex: Female
  Weight: 68 kg

DRUGS (7)
  1. VELCADE [Suspect]
     Indication: MULTIPLE MYELOMA
     Dosage: 3.5 MG, INTRAVENOUS
     Route: 042
     Dates: start: 20080731
  2. DEXAMETHASONE TAB [Suspect]
     Indication: MULTIPLE MYELOMA
     Dosage: 40 MG, ORAL
     Route: 048
     Dates: start: 20080731
  3. THALIDOMIDE [Suspect]
     Indication: MULTIPLE MYELOMA
     Dosage: 200 MG, ORAL
     Route: 048
     Dates: start: 20080731
  4. CORDARONE [Concomitant]
  5. CELECTOL [Concomitant]
  6. PREVISCAN (FLUINDIONE) [Concomitant]
  7. INNOHEP [Concomitant]

REACTIONS (3)
  - ATRIAL FIBRILLATION [None]
  - DISEASE PROGRESSION [None]
  - MULTIPLE MYELOMA [None]
